FAERS Safety Report 10076824 (Version 1)
Quarter: 2014Q2

REPORT INFORMATION
  Report Type: Spontaneous
  Country: IE (occurrence: IE)
  Receive Date: 20140414
  Receipt Date: 20140414
  Transmission Date: 20141212
  Serious: Yes (Hospitalization)
  Sender: FDA-Public Use
  Company Number: PHHY2014IE044860

PATIENT
  Age: 77 Year
  Sex: Female

DRUGS (15)
  1. NILOTINIB [Suspect]
     Dosage: 300 MG, BID
     Route: 048
     Dates: start: 2008, end: 20110408
  2. THIAMINE [Concomitant]
     Dosage: 100 MG, QD
     Route: 048
  3. FENTANIL [Concomitant]
     Dosage: 50 UG, UNK
     Route: 061
  4. AMITRIPTYLINE [Concomitant]
     Dosage: 10 MG, QD
     Route: 048
  5. PREGABALIN [Concomitant]
     Dosage: 25 MG, BID
     Route: 048
  6. CLOPIDOGREL [Concomitant]
     Dosage: 75 MG, QD
  7. ASPIRIN [Concomitant]
     Dosage: 75 MG, UNK
     Route: 048
  8. PRAVASTATIN [Concomitant]
     Dosage: 40 MG, QD
     Route: 048
  9. SODIUM BICARBONATE [Concomitant]
     Dosage: 1.2 G, BID
     Route: 048
  10. DOXAZOSIN [Concomitant]
     Dosage: 8 MG, QD
     Route: 048
  11. NEBIVOLOL [Concomitant]
     Dosage: 2.5 G, QD
     Route: 048
  12. AMLODIPINE [Concomitant]
     Dosage: 5 MG, QD
     Route: 048
  13. GALFER [Concomitant]
     Dosage: 1 DF, QD
     Route: 048
  14. LIDOCAINE [Concomitant]
     Dosage: 5 UNK, UNK
  15. CENTRUM [Concomitant]
     Dosage: 1 DF, QD
     Route: 048

REACTIONS (2)
  - Gangrene [Recovered/Resolved with Sequelae]
  - Peripheral arterial occlusive disease [Recovered/Resolved with Sequelae]
